FAERS Safety Report 10151973 (Version 1)
Quarter: 2014Q2

REPORT INFORMATION
  Report Type: Spontaneous
  Country: US (occurrence: None)
  Receive Date: 20140501
  Receipt Date: 20140501
  Transmission Date: 20141212
  Serious: Yes (Hospitalization)
  Sender: FDA-Public Use
  Company Number: 2014-US-004775

PATIENT
  Age: 24 Year
  Sex: Female

DRUGS (1)
  1. XYREM (SODIUM OXYBATE) ORAL SOLUTION, 500 MG/ML [Suspect]
     Indication: NARCOLEPSY
     Route: 048
     Dates: start: 201206, end: 201208

REACTIONS (7)
  - Umbilical cord prolapse [None]
  - Caesarean section [None]
  - Pregnancy [None]
  - Maternal drugs affecting foetus [None]
  - Convulsion [None]
  - Blood pressure increased [None]
  - Anxiety [None]
